FAERS Safety Report 25779124 (Version 1)
Quarter: 2025Q3

REPORT INFORMATION
  Report Type: Spontaneous
  Country: US (occurrence: None)
  Receive Date: 20250909
  Receipt Date: 20250909
  Transmission Date: 20251020
  Serious: Yes (Hospitalization)
  Sender: FDA-CTU
  Company Number: None

PATIENT
  Age: 66 Year
  Sex: Male

DRUGS (5)
  1. ZANUBRUTINIB [Suspect]
     Active Substance: ZANUBRUTINIB
     Indication: Waldenstrom^s macroglobulinaemia
     Dosage: FREQUENCY : TWICE A DAY;?
     Route: 048
     Dates: start: 20240829
  2. PREDNISONE [Concomitant]
     Active Substance: PREDNISONE
  3. Ondanstron [Concomitant]
  4. BACTRIM [Concomitant]
     Active Substance: SULFAMETHOXAZOLE\TRIMETHOPRIM
  5. LORAZEPAM [Concomitant]
     Active Substance: LORAZEPAM

REACTIONS (9)
  - Increased tendency to bruise [None]
  - Therapy cessation [None]
  - Skin texture abnormal [None]
  - Pyrexia [None]
  - Dyspnoea [None]
  - Pain in extremity [None]
  - Peripheral swelling [None]
  - Chills [None]
  - Pain [None]

NARRATIVE: CASE EVENT DATE: 20250509
